FAERS Safety Report 9363369 (Version 1)
Quarter: 2013Q2

REPORT INFORMATION
  Report Type: Spontaneous
  Country: KR (occurrence: KR)
  Receive Date: 20130624
  Receipt Date: 20130624
  Transmission Date: 20140414
  Serious: Yes (Hospitalization)
  Sender: FDA-Public Use
  Company Number: KR-JNJFOC-20130607263

PATIENT
  Age: 46 Month
  Sex: Male

DRUGS (1)
  1. CHILDREN^S TYLENOL [Suspect]
     Indication: PYREXIA
     Dosage: 4 TIMES AT AN INTERVAL OF 3-4 HOURS FOR 12 HOURS
     Route: 048
     Dates: start: 2013

REACTIONS (4)
  - Encephalitis [Recovered/Resolved]
  - Petit mal epilepsy [Recovered/Resolved]
  - Drug ineffective [Unknown]
  - Heat cramps [Unknown]
